FAERS Safety Report 7199349-1 (Version None)
Quarter: 2010Q4

REPORT INFORMATION
  Report Type: 
  Country: None (occurrence: None)
  Receive Date: 20101228
  Receipt Date: 20101221
  Transmission Date: 20110411
  Serious: Yes (Disabling)
  Sender: FDA-Public Use
  Company Number: JP-ELI_LILLY_AND_COMPANY-JP201012004936

PATIENT
  Age: 20 Year
  Sex: Female
  Weight: 59.8 kg

DRUGS (4)
  1. SOMATROPIN RDNA [Suspect]
     Dosage: 0.15 MG, DAILY (1/D)
     Route: 058
     Dates: start: 20080414
  2. LEVOTHYROXINE SODIUM [Concomitant]
     Indication: HYPOTHYROIDISM
     Dosage: 75 UG, DAILY (1/D)
     Route: 048
     Dates: start: 20041116
  3. DESMOPRESSIN [Concomitant]
     Indication: DIABETES INSIPIDUS
     Dosage: 2.5 UG, DAILY (1/D)
     Route: 045
     Dates: start: 20050607
  4. DEPAKENE [Concomitant]
     Indication: PARALYSIS
     Dosage: 200 MG, DAILY (1/D)
     Route: 048
     Dates: start: 19900426

REACTIONS (1)
  - LIMB ASYMMETRY [None]
